FAERS Safety Report 5370984-6 (Version None)
Quarter: 2007Q2

REPORT INFORMATION
  Report Type: 
  Country: None (occurrence: None)
  Receive Date: 20070626
  Receipt Date: 20070618
  Transmission Date: 20071010
  Serious: Yes (Hospitalization)
  Sender: FDA-Public Use
  Company Number: JP-PFIZER INC-2007042066

PATIENT
  Sex: Female
  Weight: 49 kg

DRUGS (1)
  1. AZULFIDINE EN-TABS [Suspect]
     Indication: EXOSTOSIS
     Route: 048
     Dates: start: 20070423, end: 20070506

REACTIONS (8)
  - ARTHRALGIA [None]
  - CHILLS [None]
  - DYSPNOEA [None]
  - HEADACHE [None]
  - HEPATIC FUNCTION ABNORMAL [None]
  - NAUSEA [None]
  - PYREXIA [None]
  - VOMITING [None]
